FAERS Safety Report 6826455-0 (Version None)
Quarter: 2010Q3

REPORT INFORMATION
  Report Type: 
  Country: None (occurrence: None)
  Receive Date: 20100709
  Receipt Date: 20100705
  Transmission Date: 20110219
  Serious: Yes (Other)
  Sender: FDA-Public Use
  Company Number: BR-SANOFI-AVENTIS-2010SA036904

PATIENT
  Age: 65 Year
  Sex: Male
  Weight: 92 kg

DRUGS (4)
  1. LANTUS [Suspect]
     Dosage: 23IU MORNING + 23IU AT NIGHT
     Route: 058
  2. OPTIPEN [Suspect]
  3. HUMALOG [Concomitant]
     Route: 058
  4. ALL OTHER THERAPEUTIC PRODUCTS [Concomitant]

REACTIONS (2)
  - DEMENTIA ALZHEIMER'S TYPE [None]
  - HALLUCINATION, AUDITORY [None]
